FAERS Safety Report 9460928 (Version 4)
Quarter: 2013Q4

REPORT INFORMATION
  Report Type: Spontaneous
  Country: US (occurrence: US)
  Receive Date: 20130816
  Receipt Date: 20131010
  Transmission Date: 20140711
  Serious: No
  Sender: FDA-Public Use
  Company Number: US-009507513-1308USA005890

PATIENT
  Age: 65 Year
  Sex: Female
  Weight: 90.7 kg

DRUGS (3)
  1. PEGINTRON [Suspect]
     Indication: HEPATITIS C
     Dosage: REDIPEN
     Route: 058
     Dates: start: 20130806, end: 20130917
  2. REBETOL [Suspect]
     Indication: HEPATITIS C
     Dosage: UNKNOWN
     Dates: start: 20130806, end: 20130917
  3. VICTRELIS [Suspect]
     Indication: HEPATITIS C
     Dosage: UNK
     Dates: start: 20130903, end: 20130904

REACTIONS (24)
  - Feeling hot [Not Recovered/Not Resolved]
  - Hyperhidrosis [Unknown]
  - Feeling cold [Not Recovered/Not Resolved]
  - Diarrhoea [Not Recovered/Not Resolved]
  - Dysgeusia [Unknown]
  - Headache [Not Recovered/Not Resolved]
  - Diarrhoea [Unknown]
  - Fatigue [Unknown]
  - Asthenia [Unknown]
  - Retching [Unknown]
  - Vomiting [Unknown]
  - Oropharyngeal pain [Unknown]
  - Decreased appetite [Unknown]
  - Dysgeusia [Unknown]
  - Fatigue [Unknown]
  - Nausea [Unknown]
  - Dyspnoea [Unknown]
  - Cough [Unknown]
  - Eye disorder [Unknown]
  - Skin disorder [Unknown]
  - Hyperhidrosis [Unknown]
  - Acne [Unknown]
  - Rash [Unknown]
  - Parosmia [Unknown]
